FAERS Safety Report 15124664 (Version 3)
Quarter: 2018Q3

REPORT INFORMATION
  Report Type: Spontaneous
  Country: US (occurrence: US)
  Receive Date: 20180710
  Receipt Date: 20180924
  Transmission Date: 20181010
  Serious: No
  Sender: FDA-Public Use
  Company Number: US-PFIZER INC-2018275907

PATIENT
  Age: 13 Year
  Sex: Male

DRUGS (2)
  1. GENOTROPIN MQ [Suspect]
     Active Substance: SOMATROPIN
     Indication: GROWTH HORMONE DEFICIENCY
     Dosage: 0.8 MG, DAILY
     Dates: start: 201708
  2. GENOTROPIN MQ [Suspect]
     Active Substance: SOMATROPIN
     Dosage: UNK
     Dates: start: 20171221

REACTIONS (2)
  - Astigmatism [Unknown]
  - Arthralgia [Unknown]

NARRATIVE: CASE EVENT DATE: 201712
